FAERS Safety Report 8778805 (Version 1)
Quarter: 2012Q4

REPORT INFORMATION
  Report Type: 
  Country: US (occurrence: US)
  Receive Date: 20120912
  Receipt Date: 20120912
  Transmission Date: 20130627
  Serious: No
  Sender: FDA-Public Use
  Company Number: US-PFIZER INC-2012221272

PATIENT
  Age: 73 Year
  Sex: Female
  Weight: 79.37 kg

DRUGS (12)
  1. SUTENT [Suspect]
     Indication: RENAL CANCER METASTATIC
     Dosage: 37.5 mg (three capsules of 12.5mg), 1x/day
     Route: 048
     Dates: start: 20120823
  2. HUMALOG [Concomitant]
     Dosage: UNK
  3. METOPROLOL [Concomitant]
     Dosage: UNK
  4. SYNTHROID [Concomitant]
     Dosage: UNK
  5. QUINAPRIL [Concomitant]
     Dosage: UNK
  6. LIPITOR [Concomitant]
     Dosage: UNK
  7. LUMIGAN [Concomitant]
     Dosage: UNK
  8. CENTRUM SILVER [Concomitant]
     Dosage: UNK
  9. OS-CAL D [Concomitant]
     Dosage: UNK
  10. VITAMIN C [Concomitant]
     Dosage: UNK
  11. VITAMIN B12 [Concomitant]
     Dosage: UNK
  12. FOLIC ACID [Concomitant]
     Dosage: UNK

REACTIONS (2)
  - Glossodynia [Not Recovered/Not Resolved]
  - Diarrhoea [Not Recovered/Not Resolved]
